FAERS Safety Report 4986277-2 (Version None)
Quarter: 2006Q2

REPORT INFORMATION
  Report Type: 
  Country: None (occurrence: None)
  Receive Date: 20060428
  Receipt Date: 20050926
  Transmission Date: 20061013
  Serious: Yes (Hospitalization)
  Sender: FDA-Public Use
  Company Number: US-MERCK-0509USA03774

PATIENT
  Age: 70 Year
  Sex: Female
  Weight: 72 kg

DRUGS (3)
  1. VIOXX [Suspect]
     Indication: ARTHRITIS
     Route: 048
     Dates: start: 20031101, end: 20040401
  2. NORVASC [Concomitant]
     Route: 065
  3. CORZIDE TABLETS [Concomitant]
     Route: 065

REACTIONS (6)
  - ACUTE MYOCARDIAL INFARCTION [None]
  - ARTERIOSCLEROSIS CORONARY ARTERY [None]
  - DEEP VEIN THROMBOSIS [None]
  - ESSENTIAL HYPERTENSION [None]
  - JOINT EFFUSION [None]
  - OSTEOARTHRITIS [None]
